FAERS Safety Report 24724618 (Version 2)
Quarter: 2025Q1

REPORT INFORMATION
  Report Type: Spontaneous
  Country: US (occurrence: US)
  Receive Date: 20241212
  Receipt Date: 20250218
  Transmission Date: 20250409
  Serious: Yes (Other)
  Sender: AUROBINDO
  Company Number: US-AUROBINDO-AUR-APL-2024-059479

PATIENT
  Age: 48 Year
  Sex: Male

DRUGS (4)
  1. PREDNISONE [Suspect]
     Active Substance: PREDNISONE
     Indication: Antineutrophil cytoplasmic antibody
     Route: 065
  2. PREDNISONE [Suspect]
     Active Substance: PREDNISONE
     Indication: Nephropathy
  3. RITUXIMAB [Suspect]
     Active Substance: RITUXIMAB
     Indication: Antineutrophil cytoplasmic antibody
     Route: 065
  4. RITUXIMAB [Suspect]
     Active Substance: RITUXIMAB
     Indication: Nephropathy

REACTIONS (1)
  - Drug ineffective [Unknown]
